FAERS Safety Report 22034616 (Version 4)
Quarter: 2023Q1

REPORT INFORMATION
  Report Type: Spontaneous
  Country: CH (occurrence: CH)
  Receive Date: 20230224
  Receipt Date: 20230321
  Transmission Date: 20230417
  Serious: Yes (Other)
  Sender: FDA-Public Use
  Company Number: CH-AMERICAN REGENT INC-2023000466

PATIENT
  Age: 46 Year
  Sex: Female

DRUGS (2)
  1. VENOFER [Suspect]
     Active Substance: IRON SUCROSE
     Indication: Iron deficiency
     Dosage: 100 MG, ONCE (DILUTION: 100 ML NACL)
     Dates: start: 20230213, end: 20230213
  2. VENOFER [Suspect]
     Active Substance: IRON SUCROSE
     Indication: Symptomatic treatment

REACTIONS (3)
  - Somnolence [Recovered/Resolved]
  - Hypoglycaemia [Recovered/Resolved]
  - Depressed level of consciousness [Recovered/Resolved]

NARRATIVE: CASE EVENT DATE: 20230213
